FAERS Safety Report 10507536 (Version 1)
Quarter: 2014Q4

REPORT INFORMATION
  Report Type: Spontaneous
  Country: NO (occurrence: NO)
  Receive Date: 20141009
  Receipt Date: 20141009
  Transmission Date: 20150528
  Serious: Yes (Life-Threatening, Hospitalization)
  Sender: FDA-Public Use
  Company Number: NO-ACTAVIS-2014-21392

PATIENT
  Age: 57 Year
  Sex: Female

DRUGS (5)
  1. DEXAGALEN [Concomitant]
     Indication: PREMEDICATION
     Dosage: 8 MG, TOTAL
     Route: 042
     Dates: start: 20140902, end: 20140902
  2. ONDANSETRON [Concomitant]
     Active Substance: ONDANSETRON
     Indication: PREMEDICATION
     Dosage: 4 MG, TOTAL
     Route: 042
     Dates: start: 20140902, end: 20140902
  3. PARACETAMOL [Concomitant]
     Active Substance: ACETAMINOPHEN
     Indication: PREMEDICATION
     Dosage: 1500 MG, TOTAL
     Route: 048
     Dates: start: 20140902, end: 20140902
  4. LEPTANAL [Concomitant]
     Indication: PREMEDICATION
     Dosage: 0.1 MG, TOTAL
     Route: 042
     Dates: start: 20140902, end: 20140902
  5. DICLOFENAC (UNKNOWN) [Suspect]
     Active Substance: DICLOFENAC SODIUM
     Indication: PREMEDICATION
     Dosage: 100 MG, TOTAL (TABLET)
     Route: 048
     Dates: start: 20140902, end: 20140902

REACTIONS (2)
  - Anaphylactic shock [Recovered/Resolved]
  - Drug hypersensitivity [Recovered/Resolved]

NARRATIVE: CASE EVENT DATE: 20140902
